FAERS Safety Report 4685212-4 (Version None)
Quarter: 2005Q2

REPORT INFORMATION
  Report Type: 
  Country: None (occurrence: None)
  Receive Date: 20050608
  Receipt Date: 20050602
  Transmission Date: 20051028
  Serious: Yes (Death, Hospitalization)
  Sender: FDA-Public Use
  Company Number: GB-BOEHRINGER INGELHEIM PHARMACEUTICALS, INC.-2005-BP-09396YA

PATIENT
  Age: 62 Year
  Sex: Male

DRUGS (9)
  1. TAMSULOSIN CAPSULES [Suspect]
     Route: 048
     Dates: start: 20041111, end: 20041119
  2. SIMVASTATIN [Suspect]
     Indication: HYPERCHOLESTEROLAEMIA
     Route: 048
     Dates: start: 20010901, end: 20041119
  3. CYCLOSPORINE [Suspect]
     Route: 048
     Dates: start: 20041001, end: 20041119
  4. PREDNISONE TAB [Concomitant]
     Route: 048
  5. MYCOPHENOLATE [Concomitant]
     Route: 048
  6. LANSOPRAZOLE [Concomitant]
     Route: 048
  7. CALCITRIOL [Concomitant]
     Route: 048
  8. CO-TRIMOXAZOLE [Concomitant]
     Route: 048
  9. FUROSEMIDE [Concomitant]

REACTIONS (2)
  - BLOOD POTASSIUM INCREASED [None]
  - RHABDOMYOLYSIS [None]
